FAERS Safety Report 8250436-6 (Version None)
Quarter: 2012Q2

REPORT INFORMATION
  Report Type: 
  Country: None (occurrence: None)
  Receive Date: 20120402
  Receipt Date: 20120323
  Transmission Date: 20120825
  Serious: Yes (Other)
  Sender: FDA-Public Use
  Company Number: TR-JNJFOC-20120313470

PATIENT
  Age: 55 Year
  Sex: Male

DRUGS (10)
  1. RISPERIDONE [Suspect]
     Route: 048
  2. HALOPERIDOL [Suspect]
     Indication: HYPOMANIA
     Route: 065
  3. RISPERIDONE [Suspect]
     Indication: HYPOMANIA
     Route: 048
  4. CHLORPROMAZINE [Suspect]
     Indication: HYPOMANIA
     Route: 065
  5. RISPERDAL CONSTA [Suspect]
     Indication: HYPOMANIA
     Route: 030
  6. ENALAPRIL [Concomitant]
     Indication: DIABETES MELLITUS
     Route: 065
  7. PIOGLITAZONE [Concomitant]
     Indication: DIABETES MELLITUS
     Route: 065
  8. METFORMIN HCL [Concomitant]
     Indication: DIABETES MELLITUS
     Route: 065
  9. CLONAZEPAM [Suspect]
     Indication: HYPOMANIA
     Route: 065
  10. BIPERIDEN HYDROCHLORIDE TAB [Suspect]
     Indication: HYPOMANIA
     Route: 065

REACTIONS (4)
  - INCREASED APPETITE [None]
  - HEPATITIS C [None]
  - CEREBRAL ATROPHY [None]
  - TREATMENT NONCOMPLIANCE [None]
